FAERS Safety Report 10052849 (Version 2)
Quarter: 2014Q2

REPORT INFORMATION
  Report Type: Spontaneous
  Country: JP (occurrence: None)
  Receive Date: 20140331
  Receipt Date: 20140527
  Transmission Date: 20141212
  Serious: Yes (Other)
  Sender: FDA-Public Use
  Company Number: SYM-2014-19087

PATIENT
  Age: 63 Year
  Sex: Male

DRUGS (7)
  1. FLUOROURACIL (FLUOROURACIL) [Suspect]
     Indication: NEUROENDOCRINE CARCINOMA
     Dates: start: 201206
  2. OXALIPLATIN (OXALIPLATIN) [Suspect]
     Indication: NEUROENDOCRINE CARCINOMA
     Dates: start: 201206, end: 201210
  3. FOLINIC ACID [Concomitant]
  4. BEVACIZUMAB [Concomitant]
  5. SANDOSTATIN LAR (OCTREOTIDE) [Concomitant]
  6. METASTRON (STRONTIUM (89 SR) CHLORIDE) [Concomitant]
  7. ZOMETA (ZOLEDRONIC ACID) [Concomitant]

REACTIONS (4)
  - Neurotoxicity [None]
  - Malignant neoplasm progression [None]
  - Metastases to bone [None]
  - Neuroendocrine carcinoma [None]
